FAERS Safety Report 7698634-4 (Version None)
Quarter: 2011Q3

REPORT INFORMATION
  Report Type: 
  Country: None (occurrence: None)
  Receive Date: 20110818
  Receipt Date: 20110818
  Transmission Date: 20111222
  Serious: Yes (Hospitalization)
  Sender: FDA-Public Use
  Company Number: None

PATIENT
  Age: 65 Year
  Sex: Female
  Weight: 55.8 kg

DRUGS (3)
  1. PACLITAXEL [Suspect]
     Indication: OVARIAN CANCER
     Dosage: 175 MG/M2
     Dates: start: 20110808
  2. CARBOPLATIN [Suspect]
     Dosage: IV/ AUC 5 IV
     Dates: start: 20110808
  3. RIDAFOROLIMUS [Suspect]
     Indication: OVARIAN CANCER
     Dosage: 10MG PO DAY 2-5
     Dates: start: 20110809, end: 20110812

REACTIONS (5)
  - CELLULITIS [None]
  - STREPTOCOCCAL INFECTION [None]
  - RASH MACULO-PAPULAR [None]
  - BODY TEMPERATURE FLUCTUATION [None]
  - ERYTHEMA [None]
